FAERS Safety Report 6982243-6 (Version None)
Quarter: 2010Q3

REPORT INFORMATION
  Report Type: 
  Country: None (occurrence: None)
  Receive Date: 20100909
  Receipt Date: 20100826
  Transmission Date: 20110219
  Serious: Yes (Hospitalization)
  Sender: FDA-Public Use
  Company Number: 010700

PATIENT
  Sex: Female
  Weight: 57.3 kg

DRUGS (5)
  1. LACOSAMIDE [Suspect]
     Indication: PARTIAL SEIZURES
     Dosage: 50 MG BID ORAL, 200 MG BID ORAL
     Route: 048
     Dates: start: 20100414, end: 20100421
  2. LACOSAMIDE [Suspect]
     Indication: PARTIAL SEIZURES
     Dosage: 50 MG BID ORAL, 200 MG BID ORAL
     Route: 048
     Dates: start: 20100401
  3. LAMICTAL [Concomitant]
  4. LYRICA [Concomitant]
  5. AMOXICILLIN [Concomitant]

REACTIONS (7)
  - CONVULSION [None]
  - DIZZINESS [None]
  - DYSKINESIA [None]
  - EXTRAPYRAMIDAL DISORDER [None]
  - LETHARGY [None]
  - OROPHARYNGEAL PAIN [None]
  - TREMOR [None]
